FAERS Safety Report 9784507 (Version 2)
Quarter: 2013Q4

REPORT INFORMATION
  Report Type: Report from Study
  Country: JP (occurrence: JP)
  Receive Date: 20131226
  Receipt Date: 20131226
  Transmission Date: 20140711
  Serious: Yes (Other)
  Sender: FDA-Public Use
  Company Number: JP-TAKEDA-TCI2013A03857

PATIENT
  Age: 63 Year
  Sex: Male
  Weight: 60 kg

DRUGS (14)
  1. ALOGLIPTIN [Suspect]
     Indication: TYPE 2 DIABETES MELLITUS
     Dosage: 12.5 MG, QD
     Route: 048
     Dates: start: 20101105, end: 20101118
  2. ALOGLIPTIN [Suspect]
     Dosage: 25 MG, QD
     Route: 048
     Dates: start: 20101119, end: 20120923
  3. ALOGLIPTIN [Suspect]
     Dosage: 12.5 MG, QD
     Route: 048
     Dates: start: 20120924, end: 20130128
  4. ECARD COMBINATION TABLETS HD [Concomitant]
     Dosage: 1 DF, QD
     Route: 048
     Dates: end: 20120915
  5. BLOPRESS TABLETS 8 [Concomitant]
     Dosage: 8 MG, 1 DAYS
     Route: 048
     Dates: start: 20120315, end: 20120919
  6. CALBLOCK [Concomitant]
     Dosage: 16 MG, 1 DAYS
     Route: 048
     Dates: end: 20120915
  7. RASILEZ [Concomitant]
     Dosage: 150 MG,1 DAYS
     Route: 048
     Dates: end: 20101202
  8. RASILEZ [Concomitant]
     Dosage: 300 MG,1 DAYS
     Route: 048
     Dates: start: 20101203, end: 20120106
  9. LOXOPROFEN NA [Concomitant]
     Dosage: 3 DF,1 DAYS
     Route: 048
     Dates: end: 20130128
  10. DEPAS [Concomitant]
     Indication: TENSION HEADACHE
     Dosage: 3 DF, 1 DAYS
     Route: 048
     Dates: end: 20130128
  11. FLUITRAN [Concomitant]
     Dosage: 2 MG,1 DAYS
     Route: 048
     Dates: start: 20120916, end: 20130128
  12. ARTIST [Concomitant]
     Dosage: 10 MG,1 DAYS
     Route: 048
     Dates: start: 20120916, end: 20130128
  13. CELECOX [Concomitant]
     Dosage: 400 MG, 1 DAYS
     Route: 048
     Dates: start: 20120307, end: 20120919
  14. CALONAL [Concomitant]
     Dosage: 900 MG, 1 DAYS
     Route: 048
     Dates: start: 20120924, end: 20121006

REACTIONS (5)
  - Cerebral infarction [Recovered/Resolved]
  - Hypertension [Recovered/Resolved]
  - Gastrooesophageal reflux disease [Recovering/Resolving]
  - Condition aggravated [Recovering/Resolving]
  - Condition aggravated [Recovered/Resolved]
